FAERS Safety Report 13478061 (Version 1)
Quarter: 2017Q2

REPORT INFORMATION
  Report Type: Other
  Country: None (occurrence: GB)
  Receive Date: 20170425
  Receipt Date: 20170425
  Transmission Date: 20170830
  Serious: Yes (Hospitalization, Disabling, Congenital Anomaly, Other)
  Sender: FDA-Public Use
  Company Number: GB-ALSI-201700123

PATIENT
  Sex: Female

DRUGS (1)
  1. NITROUS OXIDE. [Suspect]
     Active Substance: NITROUS OXIDE
     Indication: ANALGESIC THERAPY
     Route: 064
     Dates: start: 19901024

REACTIONS (4)
  - Failure to thrive [None]
  - Cytogenetic abnormality [None]
  - Low birth weight baby [None]
  - Vitamin B12 deficiency [None]
